FAERS Safety Report 7263097-X (Version None)
Quarter: 2011Q1

REPORT INFORMATION
  Report Type: 
  Country: None (occurrence: None)
  Receive Date: 20110130
  Receipt Date: 20101005
  Transmission Date: 20110831
  Serious: No
  Sender: FDA-Public Use
  Company Number: US-ABBOTT-10P-163-0675694-00

PATIENT
  Weight: 86.26 kg

DRUGS (5)
  1. HUMIRA [Suspect]
     Dosage: --
     Route: 058
     Dates: start: 20080101, end: 20090101
  2. PREDNISONE [Concomitant]
     Indication: PRODUCT USED FOR UNKNOWN INDICATION
     Route: 048
  3. VICODIN [Concomitant]
     Indication: ARTHRALGIA
     Dosage: 7.5/325
     Route: 048
  4. HUMIRA [Suspect]
     Indication: RHEUMATOID ARTHRITIS
     Route: 058
     Dates: start: 20090101
  5. METHOTREXATE [Concomitant]
     Indication: PRODUCT USED FOR UNKNOWN INDICATION

REACTIONS (4)
  - OROPHARYNGEAL PAIN [None]
  - COUGH [None]
  - PAIN [None]
  - DRUG INEFFECTIVE [None]
